FAERS Safety Report 7384652-2 (Version None)
Quarter: 2011Q1

REPORT INFORMATION
  Report Type: 
  Country: None (occurrence: None)
  Receive Date: 20110330
  Receipt Date: 20110208
  Transmission Date: 20110831
  Serious: Yes (Death, Hospitalization, Other)
  Sender: FDA-Public Use
  Company Number: US-BAYER-200912861NA

PATIENT
  Sex: Male
  Weight: 117 kg

DRUGS (22)
  1. HEPARIN SODIUM [Concomitant]
     Dosage: 44000 U, UNK
     Route: 042
     Dates: start: 20070118, end: 20070118
  2. LEVOPHED [Concomitant]
     Dosage: UNK
     Route: 042
     Dates: start: 20070118, end: 20070118
  3. REGLAN [Concomitant]
     Dosage: UNK
     Route: 042
     Dates: start: 20070118, end: 20070118
  4. DESFLURANE [Concomitant]
     Dosage: UNK
     Dates: start: 20070118, end: 20070118
  5. TRASYLOL [Suspect]
     Indication: ECHOCARDIOGRAM
     Dosage: 50ML/HR
     Route: 042
     Dates: start: 20070118, end: 20070118
  6. INSULIN [Concomitant]
     Dosage: UNK
     Route: 042
     Dates: start: 20070118, end: 20070118
  7. NEO-SYNEPHRINOL [Concomitant]
     Dosage: UNK
     Route: 042
     Dates: start: 20070118, end: 20070118
  8. PLATELETS [Concomitant]
     Dosage: UNK
     Route: 042
     Dates: start: 20070118, end: 20070118
  9. PROTAMINE SULFATE [Concomitant]
     Dosage: 500 MG, UNK
     Route: 042
     Dates: start: 20070118, end: 20070118
  10. BLOOD CELLS, PACKED HUMAN [Concomitant]
     Dosage: 2 U, UNK
     Route: 042
     Dates: start: 20070118, end: 20070118
  11. VERSED [Concomitant]
     Dosage: UNK
     Route: 042
     Dates: start: 20070118, end: 20070118
  12. DOPAMINE [Concomitant]
     Dosage: UNK
     Route: 042
     Dates: start: 20070118, end: 20070118
  13. POTASSIUM CHLORIDE [Concomitant]
     Dosage: UNK
     Route: 042
     Dates: start: 20070118, end: 20070118
  14. CIPRO [Concomitant]
     Dosage: UNK
     Dates: start: 20070205
  15. TRASYLOL [Suspect]
     Indication: AORTIC VALVE REPLACEMENT
     Dosage: 200 ML, UNK
     Route: 042
     Dates: start: 20070118, end: 20070118
  16. ZINACEF [Concomitant]
  17. FENTANYL [Concomitant]
     Dosage: UNK
     Route: 042
     Dates: start: 20070118, end: 20070118
  18. SUCCINYLCHOLINE CHLORIDE [Concomitant]
     Dosage: UNK
     Route: 042
     Dates: start: 20070118, end: 20070118
  19. ZINACEF [Concomitant]
     Dosage: 3 G, UNK
     Route: 042
     Dates: start: 20070118, end: 20070118
  20. PLASMA [Concomitant]
     Dosage: 2 U, UNK
     Route: 042
     Dates: start: 20070118, end: 20070118
  21. ISOVUE-128 [Concomitant]
     Dosage: 100 ML, UNK
     Dates: start: 20061128, end: 20061128
  22. PROPOFOL [Concomitant]
     Dosage: UNK
     Dates: start: 20070118, end: 20070118

REACTIONS (5)
  - UNEVALUABLE EVENT [None]
  - RENAL FAILURE ACUTE [None]
  - INJURY [None]
  - PAIN [None]
  - RENAL FAILURE [None]
